FAERS Safety Report 20955697 (Version 4)
Quarter: 2022Q2

REPORT INFORMATION
  Report Type: Spontaneous
  Country: US (occurrence: US)
  Receive Date: 20220614
  Receipt Date: 20220624
  Transmission Date: 20220720
  Serious: No
  Sender: FDA-Public Use
  Company Number: US-UNITED THERAPEUTICS-UNT-2022-012760

PATIENT
  Sex: Female
  Weight: 72.109 kg

DRUGS (5)
  1. TYVASO [Suspect]
     Active Substance: TREPROSTINIL
     Indication: Pulmonary arterial hypertension
     Dosage: UNK
     Dates: start: 20220525
  2. TYVASO [Suspect]
     Active Substance: TREPROSTINIL
     Dosage: 18-54 ?G, QID
     Dates: start: 2022
  3. TYVASO [Suspect]
     Active Substance: TREPROSTINIL
     Dosage: 54 ?G
     Dates: start: 20220615, end: 202206
  4. TYVASO [Suspect]
     Active Substance: TREPROSTINIL
     Dosage: 48 ?G (PER TREATMENT)
     Dates: start: 202206
  5. BOTOX [Suspect]
     Active Substance: ONABOTULINUMTOXINA
     Indication: Product used for unknown indication
     Dosage: UNK
     Route: 065

REACTIONS (10)
  - Cough [Unknown]
  - Fungal skin infection [Unknown]
  - Headache [Not Recovered/Not Resolved]
  - Dyspnoea [Unknown]
  - Hypotension [Recovering/Resolving]
  - Fatigue [Unknown]
  - Laziness [Recovering/Resolving]
  - Lethargy [Recovering/Resolving]
  - Therapy non-responder [Unknown]
  - Heart rate irregular [Unknown]

NARRATIVE: CASE EVENT DATE: 20220101
